FAERS Safety Report 13080906 (Version 1)
Quarter: 2017Q1

REPORT INFORMATION
  Report Type: Spontaneous
  Country: US (occurrence: US)
  Receive Date: 20170103
  Receipt Date: 20170103
  Transmission Date: 20170428
  Serious: Yes (Hospitalization)
  Sender: FDA-Public Use
  Company Number: US-US WORLDMEDS, LLC-USW201612-000963

PATIENT
  Age: 81 Year
  Sex: Male
  Weight: 79.83 kg

DRUGS (6)
  1. APOKYN [Suspect]
     Active Substance: APOMORPHINE HYDROCHLORIDE
     Route: 058
  2. TAMULOSIN [Concomitant]
     Active Substance: TAMSULOSIN
  3. SINEMET [Concomitant]
     Active Substance: CARBIDOPA\LEVODOPA
  4. AZILECT [Suspect]
     Active Substance: RASAGILINE MESYLATE
     Dates: start: 20161218, end: 20161218
  5. LOSARTAN. [Concomitant]
     Active Substance: LOSARTAN
  6. APOKYN [Suspect]
     Active Substance: APOMORPHINE HYDROCHLORIDE
     Indication: PARKINSON^S DISEASE
     Route: 058
     Dates: start: 2014

REACTIONS (3)
  - Staring [Recovered/Resolved]
  - Slow response to stimuli [Recovered/Resolved]
  - Loss of consciousness [Recovered/Resolved]

NARRATIVE: CASE EVENT DATE: 20161218
